FAERS Safety Report 8106727-2 (Version None)
Quarter: 2012Q1

REPORT INFORMATION
  Report Type: 
  Country: None (occurrence: None)
  Receive Date: 20120130
  Receipt Date: 20120117
  Transmission Date: 20120608
  Serious: Yes (Other)
  Sender: FDA-Public Use
  Company Number: TPA2012A00359

PATIENT
  Age: 32 Year
  Sex: Male

DRUGS (2)
  1. ACTOS [Suspect]
     Dosage: 15 MG, 1 IN 1 D, PER ORAL
     Route: 048
  2. ACTOPLUS MET [Suspect]

REACTIONS (1)
  - BLADDER CANCER [None]
